FAERS Safety Report 4887997-0 (Version None)
Quarter: 2006Q1

REPORT INFORMATION
  Report Type: 
  Country: None (occurrence: None)
  Receive Date: 20060123
  Receipt Date: 20051210
  Transmission Date: 20060701
  Serious: Yes (Hospitalization, Other)
  Sender: FDA-Public Use
  Company Number: FI-AVENTIS-200520887GDDC

PATIENT
  Age: 41 Year
  Sex: Male

DRUGS (6)
  1. LANTUS [Suspect]
     Indication: DIABETES MELLITUS
     Route: 058
  2. LANTUS [Suspect]
     Route: 058
  3. HUMALOG [Suspect]
     Indication: DIABETES MELLITUS
     Route: 058
  4. ALPHAGAN [Suspect]
     Route: 047
     Dates: start: 20051108
  5. BETOPTIC [Suspect]
     Route: 047
     Dates: start: 20051108
  6. RAMIPRIL [Concomitant]
     Indication: HYPERTONIA
     Route: 048

REACTIONS (7)
  - BLOOD GLUCOSE INCREASED [None]
  - BLOOD PRESSURE INCREASED [None]
  - DRUG INTERACTION [None]
  - FALL [None]
  - HYPERGLYCAEMIA [None]
  - HYPOGLYCAEMIC SEIZURE [None]
  - LOSS OF CONSCIOUSNESS [None]
